FAERS Safety Report 8817745 (Version 1)
Quarter: 2012Q4

REPORT INFORMATION
  Report Type: 
  Country: IT (occurrence: IT)
  Receive Date: 20121001
  Receipt Date: 20121001
  Transmission Date: 20130627
  Serious: Yes (Other)
  Sender: FDA-Public Use
  Company Number: IT-PFIZER INC-2012242245

PATIENT
  Age: 18 Year
  Sex: Female

DRUGS (2)
  1. ZOLOFT [Suspect]
     Indication: OBSESSIVE-COMPULSIVE DISORDER
     Dosage: 5 ml daily
     Route: 048
     Dates: start: 20120705, end: 20120820
  2. DELORAZEPAM [Concomitant]
     Dosage: 5 ml, UNK
     Route: 048

REACTIONS (3)
  - Encopresis [Recovered/Resolved]
  - Enuresis [Recovered/Resolved]
  - Asthenia [Recovered/Resolved]
